FAERS Safety Report 10227841 (Version 1)
Quarter: 2014Q2

REPORT INFORMATION
  Report Type: Spontaneous
  Country: US (occurrence: None)
  Receive Date: 20140609
  Receipt Date: 20140609
  Transmission Date: 20141212
  Serious: Yes (Life-Threatening, Hospitalization, Disabling)
  Sender: FDA-Public Use
  Company Number: None

PATIENT
  Age: 77 Year
  Sex: Male
  Weight: 90.72 kg

DRUGS (1)
  1. ACETAZOLAMIDE [Suspect]
     Indication: INTRAOCULAR PRESSURE TEST
     Dosage: 1 TABLET, FOUR TIMES DAILY, TAKEN BY MOUTH
     Route: 048
     Dates: start: 20130628, end: 20130702

REACTIONS (6)
  - Hepatic encephalopathy [None]
  - Hepatic cirrhosis [None]
  - Oedema [None]
  - Amnesia [None]
  - Disorientation [None]
  - Cerebrovascular accident [None]
